FAERS Safety Report 24766380 (Version 1)
Quarter: 2024Q4

REPORT INFORMATION
  Report Type: Spontaneous
  Country: SI (occurrence: SI)
  Receive Date: 20241223
  Receipt Date: 20241223
  Transmission Date: 20250115
  Serious: Yes (Hospitalization)
  Sender: BOEHRINGER INGELHEIM
  Company Number: None

PATIENT
  Age: 59 Year
  Sex: Male

DRUGS (16)
  1. OFEV [Suspect]
     Active Substance: NINTEDANIB
     Indication: Idiopathic pulmonary fibrosis
     Route: 048
     Dates: start: 20180907, end: 202411
  2. ANALGIN 500 MG [Concomitant]
     Indication: Product used for unknown indication
     Dates: start: 20241113
  3. Doreta 37,5 MG/325 MG [Concomitant]
     Indication: Product used for unknown indication
     Dosage: STRENGHT: 37,5 MG/325 MG
     Dates: start: 20241126
  4. Folna kislina Vitabalans 5 MG [Concomitant]
     Indication: Product used for unknown indication
     Dosage: 1X1
     Dates: start: 20241126
  5. Nolpaza 40 MG [Concomitant]
     Indication: Product used for unknown indication
     Dosage: 1X1
     Dates: start: 20241113
  6. KALCIJEV KARBONAT 500 MG [Concomitant]
     Indication: Product used for unknown indication
     Dosage: 1X1
     Dates: start: 20241113
  7. Fucidin 20 MG/G [Concomitant]
     Indication: Product used for unknown indication
     Dosage: STRENGHT: 20 MG/G
     Dates: start: 20241113
  8. ACETAMINOPHEN [Concomitant]
     Active Substance: ACETAMINOPHEN
     Indication: Product used for unknown indication
     Dates: start: 20241025
  9. Brufen Retard 800 MG [Concomitant]
     Indication: Product used for unknown indication
     Dosage: 1 TBL/12H
     Dates: start: 20241025
  10. BONVIVA 150 MG [Concomitant]
     Indication: Product used for unknown indication
     Dosage: 1 TBL/MONTH
     Dates: start: 20230527
  11. Naklofen duo 75 MG [Concomitant]
     Indication: Product used for unknown indication
     Dosage: 2X1 AFTER MEAL
     Dates: start: 20230221
  12. Plivit D3 4000 IU [Concomitant]
     Indication: Product used for unknown indication
     Dosage: STRENGHT: 4000 I.E./ML ?DOSE: 35GTT/WEEK
     Dates: start: 20230527
  13. OLIVE OIL [Concomitant]
     Active Substance: OLIVE OIL
     Indication: Product used for unknown indication
     Dosage: MAGISTRAL FORMULA OLEUM OLIVE IN BELOBAZA
     Dates: start: 20240216
  14. Elocom 1 MG/G [Concomitant]
     Indication: Product used for unknown indication
     Dosage: STRENGHT: 1 MG/G ?DOSE: 1X1
     Dates: start: 20240216
  15. Advantan 1MG/G [Concomitant]
     Indication: Product used for unknown indication
     Dosage: STRENGHT: 1 MG/G ?DOSE: 1X1
     Dates: start: 20240216
  16. CIPRINOL 750 MG [Concomitant]
     Indication: Product used for unknown indication
     Dosage: 2X1
     Dates: start: 20231214

REACTIONS (1)
  - Colitis [Unknown]
